FAERS Safety Report 21886593 (Version 2)
Quarter: 2023Q1

REPORT INFORMATION
  Report Type: Report from Study
  Country: US (occurrence: US)
  Receive Date: 20230119
  Receipt Date: 20230128
  Transmission Date: 20230417
  Serious: No
  Sender: FDA-Public Use
  Company Number: US-ABBVIE-4246952

PATIENT
  Sex: Female

DRUGS (2)
  1. HUMIRA [Suspect]
     Active Substance: ADALIMUMAB
     Indication: Hidradenitis
     Route: 058
     Dates: start: 20160927
  2. HUMIRA [Suspect]
     Active Substance: ADALIMUMAB
     Route: 058

REACTIONS (6)
  - Lymphadenopathy [Unknown]
  - Swelling face [Unknown]
  - Hidradenitis [Not Recovered/Not Resolved]
  - Illness [Not Recovered/Not Resolved]
  - Raynaud^s phenomenon [Unknown]
  - Autoimmune disorder [Unknown]
